FAERS Safety Report 5775947-4 (Version None)
Quarter: 2008Q2

REPORT INFORMATION
  Report Type: 
  Country: None (occurrence: None)
  Receive Date: 20080613
  Receipt Date: 20080602
  Transmission Date: 20081010
  Serious: Yes (Hospitalization, Other)
  Sender: FDA-Public Use
  Company Number: 2008S1009427

PATIENT
  Age: 60 Year
  Sex: Male

DRUGS (6)
  1. AMLODIPINE BESYLATE [Suspect]
     Indication: HYPERTENSION
     Dosage: 5 MG; DAILY; ORAL
     Route: 048
     Dates: start: 20071213, end: 20071201
  2. ESOMEPRAZOLE MAGNESIUM [Concomitant]
  3. FLUOXETINE HCL [Concomitant]
  4. ASPIRIN [Concomitant]
  5. NIASPAN [Concomitant]
  6. FLUVASTATIN [Concomitant]

REACTIONS (8)
  - DIZZINESS [None]
  - FATIGUE [None]
  - HEPATIC ENZYME INCREASED [None]
  - HEPATIC FAILURE [None]
  - HYPERHIDROSIS [None]
  - JAUNDICE [None]
  - VIRAL INFECTION [None]
  - VOMITING [None]
